FAERS Safety Report 8234093-0 (Version None)
Quarter: 2012Q1

REPORT INFORMATION
  Report Type: 
  Country: None (occurrence: None)
  Receive Date: 20120326
  Receipt Date: 20120326
  Transmission Date: 20120608
  Serious: Yes (Other)
  Sender: FDA-Public Use
  Company Number: None

PATIENT
  Age: 30 Year
  Sex: Female
  Weight: 67.131 kg

DRUGS (2)
  1. BUPROPION HCL [Suspect]
     Indication: DEPRESSION
     Dosage: 150 MG
     Route: 048
     Dates: start: 20120318, end: 20120324
  2. BUPROPION HCL [Suspect]
     Indication: ANXIETY
     Dosage: 150 MG
     Route: 048
     Dates: start: 20120318, end: 20120324

REACTIONS (7)
  - THROAT IRRITATION [None]
  - DYSPNOEA [None]
  - TONGUE DISCOLOURATION [None]
  - STOMATITIS [None]
  - MIDDLE INSOMNIA [None]
  - OROPHARYNGEAL PAIN [None]
  - SWOLLEN TONGUE [None]
